FAERS Safety Report 6733840-4 (Version None)
Quarter: 2010Q2

REPORT INFORMATION
  Report Type: 
  Country: None (occurrence: None)
  Receive Date: 20100520
  Receipt Date: 20100512
  Transmission Date: 20101027
  Serious: Yes (Other)
  Sender: FDA-Public Use
  Company Number: JP-JNJFOC-20091204682

PATIENT
  Sex: Female
  Weight: 72 kg

DRUGS (7)
  1. DOXORUBICIN HCL [Suspect]
     Indication: OVARIAN CANCER RECURRENT
     Dosage: COURSE 4
     Route: 042
  2. DOXORUBICIN HCL [Suspect]
     Dosage: COURSE 2
     Route: 042
  3. DOXORUBICIN HCL [Suspect]
     Dosage: COURSE 3
     Route: 042
  4. DOXORUBICIN HCL [Suspect]
     Dosage: COURSE 1
     Route: 042
  5. FERROMIA [Concomitant]
     Route: 048
  6. DEXART [Concomitant]
     Indication: PROPHYLAXIS
     Route: 042
  7. DEXART [Concomitant]
     Route: 042

REACTIONS (2)
  - HYPERTENSION [None]
  - PALMAR-PLANTAR ERYTHRODYSAESTHESIA SYNDROME [None]
